FAERS Safety Report 12723584 (Version 5)
Quarter: 2017Q1

REPORT INFORMATION
  Report Type: Spontaneous
  Country: KZ (occurrence: KZ)
  Receive Date: 20160908
  Receipt Date: 20170103
  Transmission Date: 20170428
  Serious: Yes (Hospitalization, Other)
  Sender: FDA-Public Use
  Company Number: KZ-JNJFOC-20160821571

PATIENT
  Age: 48 Year
  Sex: Male
  Weight: 78 kg

DRUGS (11)
  1. AMOXICILLIN. [Suspect]
     Active Substance: AMOXICILLIN
     Indication: TUBERCULOSIS
     Route: 065
     Dates: end: 20160531
  2. LOSARTAN. [Concomitant]
     Active Substance: LOSARTAN
     Indication: NEPHROPROTECTIVE THERAPY
     Route: 065
     Dates: start: 20160803
  3. IMIPENEM AND CILASTATIN [Suspect]
     Active Substance: CILASTATIN SODIUM\IMIPENEM
     Indication: TUBERCULOSIS
     Route: 042
     Dates: end: 20160531
  4. AMIKACIN [Suspect]
     Active Substance: AMIKACIN
     Indication: TUBERCULOSIS
     Route: 065
     Dates: end: 20160729
  5. FERCAYL [Concomitant]
     Active Substance: IRON DEXTRAN
     Indication: ANAEMIA
     Route: 065
     Dates: start: 20160803
  6. BEDAQUILINE [Suspect]
     Active Substance: BEDAQUILINE
     Indication: TUBERCULOSIS
     Route: 048
     Dates: start: 20160301
  7. LINEZOLID. [Suspect]
     Active Substance: LINEZOLID
     Indication: TUBERCULOSIS
     Route: 065
     Dates: start: 20160301
  8. GLICLAZIDE [Concomitant]
     Active Substance: GLICLAZIDE
     Indication: DIABETES MELLITUS
     Route: 065
     Dates: start: 20160803
  9. VINPOCETINE [Concomitant]
     Active Substance: VINPOCETINE
     Indication: DIZZINESS
     Route: 065
     Dates: start: 20160803
  10. CLOFAZIMINE [Suspect]
     Active Substance: CLOFAZIMINE
     Indication: TUBERCULOSIS
     Route: 065
     Dates: start: 20160301
  11. MOXIFLOXACIN. [Suspect]
     Active Substance: MOXIFLOXACIN
     Indication: TUBERCULOSIS
     Route: 065
     Dates: start: 20160301, end: 20160823

REACTIONS (4)
  - Nephritis [Recovering/Resolving]
  - Deafness [Unknown]
  - Myocardial infarction [Recovered/Resolved]
  - Headache [Unknown]

NARRATIVE: CASE EVENT DATE: 20160728
